FAERS Safety Report 7488419-6 (Version None)
Quarter: 2011Q2

REPORT INFORMATION
  Report Type: 
  Country: None (occurrence: None)
  Receive Date: 20110511
  Receipt Date: 20110429
  Transmission Date: 20111010
  Serious: Yes (Life-Threatening)
  Sender: FDA-Public Use
  Company Number: 906928

PATIENT
  Age: 69 Year
  Sex: Male

DRUGS (1)
  1. HYDROMORPHONE HCL [Suspect]
     Indication: PRODUCT USED FOR UNKNOWN INDICATION
     Dosage: DELIVERED IN THE PCA ON CONTINES
     Dates: start: 20110429, end: 20110429

REACTIONS (5)
  - HEAD INJURY [None]
  - DRUG ADMINISTRATION ERROR [None]
  - FALL [None]
  - INCORRECT DOSE ADMINISTERED [None]
  - CARDIO-RESPIRATORY ARREST [None]
